FAERS Safety Report 5577467-9 (Version None)
Quarter: 2007Q4

REPORT INFORMATION
  Report Type: 
  Country: None (occurrence: None)
  Receive Date: 20071228
  Receipt Date: 20071218
  Transmission Date: 20080405
  Serious: Yes (Hospitalization, Other)
  Sender: FDA-Public Use
  Company Number: US-PFIZER INC-2007106239

PATIENT
  Sex: Female
  Weight: 51.818 kg

DRUGS (4)
  1. DILANTIN [Suspect]
     Indication: CONVULSION
     Dosage: DAILY DOSE:260MG
  2. DILANTIN [Suspect]
     Dosage: TEXT:DAILY EVERY DAY TDD:260MG
  3. PHENYTOIN [Suspect]
     Indication: CONVULSION
  4. ACETYLSALICYLIC ACID SRT [Concomitant]

REACTIONS (4)
  - ADVERSE REACTION [None]
  - ANGER [None]
  - DEPRESSION [None]
  - IRRITABILITY [None]
